FAERS Safety Report 18679125 (Version 1)
Quarter: 2020Q4

REPORT INFORMATION
  Report Type: Report from Study
  Country: US (occurrence: US)
  Receive Date: 20201230
  Receipt Date: 20201230
  Transmission Date: 20210114
  Serious: No
  Sender: FDA-Public Use
  Company Number: US-B.I. PHARMACEUTICALS,INC./RIDGEFIELD-2020-BI-071839

PATIENT
  Age: 81 Year
  Sex: Female

DRUGS (2)
  1. LOPERAMIDE [Suspect]
     Active Substance: LOPERAMIDE
     Indication: PRODUCT USED FOR UNKNOWN INDICATION
  2. OFEV [Suspect]
     Active Substance: NINTEDANIB
     Indication: SYSTEMIC SCLEROSIS PULMONARY
     Dosage: 150MG BID
     Route: 048
     Dates: start: 20200828, end: 20201222

REACTIONS (3)
  - Diarrhoea [Not Recovered/Not Resolved]
  - Balance disorder [Unknown]
  - Dehydration [Unknown]

NARRATIVE: CASE EVENT DATE: 202007
